FAERS Safety Report 7724600-6 (Version None)
Quarter: 2011Q3

REPORT INFORMATION
  Report Type: 
  Country: None (occurrence: None)
  Receive Date: 20110829
  Receipt Date: 20100729
  Transmission Date: 20111222
  Serious: Yes (Hospitalization)
  Sender: FDA-Public Use
  Company Number: GER/USA/10/0015092

PATIENT
  Age: 61 Year
  Sex: Male

DRUGS (7)
  1. NIASPAN [Suspect]
     Indication: PRODUCT USED FOR UNKNOWN INDICATION
     Dosage: 500 MG
  2. HYDROCHLOROTHIAZIDE [Concomitant]
  3. GLYBURIDE [Concomitant]
  4. SIMVASTATIN [Suspect]
     Indication: PRODUCT USED FOR UNKNOWN INDICATION
  5. LISINOPRIL [Concomitant]
  6. METOPROLOL SUCCINATE [Concomitant]
  7. METFORMIN HCL [Suspect]
     Indication: TYPE 2 DIABETES MELLITUS
     Dosage: 500 MG, 2 IN 1 D, ORAL
     Route: 048

REACTIONS (8)
  - GLYCOSYLATED HAEMOGLOBIN INCREASED [None]
  - HIGH DENSITY LIPOPROTEIN DECREASED [None]
  - CONDITION AGGRAVATED [None]
  - BLOOD TRIGLYCERIDES INCREASED [None]
  - IDIOSYNCRATIC DRUG REACTION [None]
  - HEPATIC STEATOSIS [None]
  - WEIGHT DECREASED [None]
  - HEPATOTOXICITY [None]
